FAERS Safety Report 22929863 (Version 3)
Quarter: 2024Q1

REPORT INFORMATION
  Report Type: Spontaneous
  Country: US (occurrence: US)
  Receive Date: 20230911
  Receipt Date: 20240206
  Transmission Date: 20240410
  Serious: No
  Sender: FDA-Public Use
  Company Number: US-PFIZER INC-PV202300151933

PATIENT
  Age: 65 Year
  Sex: Female
  Weight: 68.027 kg

DRUGS (1)
  1. LORBRENA [Suspect]
     Active Substance: LORLATINIB
     Indication: Non-small cell lung cancer
     Dosage: 100 MG, DAILY
     Dates: start: 202308

REACTIONS (4)
  - Cerebral disorder [Unknown]
  - Memory impairment [Unknown]
  - Vision blurred [Unknown]
  - Oedema peripheral [Unknown]
